FAERS Safety Report 21475585 (Version 1)
Quarter: 2022Q4

REPORT INFORMATION
  Report Type: Spontaneous
  Country: IT (occurrence: IT)
  Receive Date: 20221019
  Receipt Date: 20221019
  Transmission Date: 20230113
  Serious: Yes (Hospitalization, Other)
  Sender: FDA-Public Use
  Company Number: None

PATIENT
  Age: 73 Year
  Sex: Male
  Weight: 107 kg

DRUGS (1)
  1. JEVTANA [Suspect]
     Active Substance: CABAZITAXEL
     Indication: Prostate cancer metastatic
     Dosage: 20 MG/M2
     Route: 042
     Dates: start: 20220704, end: 20220812

REACTIONS (2)
  - Leukopenia [Recovered/Resolved with Sequelae]
  - Dermo-hypodermitis [Recovered/Resolved with Sequelae]

NARRATIVE: CASE EVENT DATE: 20220825
